FAERS Safety Report 5909835-7 (Version None)
Quarter: 2008Q4

REPORT INFORMATION
  Report Type: 
  Country: None (occurrence: None)
  Receive Date: 20081007
  Receipt Date: 20081003
  Transmission Date: 20090506
  Serious: Yes (Death, Other)
  Sender: FDA-Public Use
  Company Number: FR-BRISTOL-MYERS SQUIBB COMPANY-14057020

PATIENT
  Age: 72 Year
  Sex: Male

DRUGS (1)
  1. SPRYCEL [Suspect]
     Indication: CHRONIC MYELOID LEUKAEMIA
     Dosage: DISCONTINUED IN AUG07 + RESTARTED ON 30AUG07 + THEN REDUCED + DISCONTINUED IN MAY08
     Dates: start: 20070314

REACTIONS (2)
  - LUNG NEOPLASM MALIGNANT [None]
  - PLEURAL EFFUSION [None]
